FAERS Safety Report 25562117 (Version 1)
Quarter: 2025Q3

REPORT INFORMATION
  Report Type: Spontaneous
  Country: EU (occurrence: EU)
  Receive Date: 20250716
  Receipt Date: 20250716
  Transmission Date: 20251020
  Serious: Yes (Hospitalization)
  Sender: ROCHE
  Company Number: EU-ROCHE-10000334184

PATIENT
  Age: 48 Year
  Sex: Female

DRUGS (1)
  1. OCRELIZUMAB [Suspect]
     Active Substance: OCRELIZUMAB
     Indication: Relapsing-remitting multiple sclerosis
     Route: 065
     Dates: start: 202106

REACTIONS (4)
  - Colitis ulcerative [Unknown]
  - Skin lesion [Unknown]
  - Depression [Unknown]
  - Pyrexia [Unknown]

NARRATIVE: CASE EVENT DATE: 20250401
